FAERS Safety Report 8961711 (Version 1)
Quarter: 2012Q4

REPORT INFORMATION
  Report Type: Report from Study
  Country: CA (occurrence: CA)
  Receive Date: 20121212
  Receipt Date: 20121212
  Transmission Date: 20130627
  Serious: Yes (Hospitalization, Other)
  Sender: FDA-Public Use
  Company Number: CA-ROCHE-1166761

PATIENT
  Age: 19 Year
  Sex: Female
  Weight: 64.01 kg

DRUGS (2)
  1. OMALIZUMAB [Suspect]
     Indication: ASTHMA
     Dosage: 300 mg, 1/Month
     Route: 058
     Dates: start: 20060308
  2. AMPICILLIN [Concomitant]
     Indication: PRODUCT USED FOR UNKNOWN INDICATION

REACTIONS (19)
  - Asthmatic crisis [Recovered/Resolved]
  - Hypersensitivity [Unknown]
  - Pneumonia [Unknown]
  - Oral herpes [Unknown]
  - Seasonal allergy [Unknown]
  - Dyspnoea [Unknown]
  - Lacrimation increased [Unknown]
  - Rhinorrhoea [Unknown]
  - Sneezing [Unknown]
  - Nasal congestion [Unknown]
  - Wheezing [Unknown]
  - Ear infection [Recovered/Resolved]
  - Sinusitis [Recovered/Resolved]
  - Laryngitis [Recovered/Resolved]
  - Increased upper airway secretion [Unknown]
  - Oropharyngeal pain [Unknown]
  - Nasopharyngitis [Unknown]
  - Headache [Unknown]
  - Pyrexia [Unknown]
